FAERS Safety Report 11275606 (Version 1)
Quarter: 2015Q3

REPORT INFORMATION
  Report Type: Spontaneous
  Country: GB (occurrence: GB)
  Receive Date: 20150716
  Receipt Date: 20150716
  Transmission Date: 20151125
  Serious: Yes (Other)
  Sender: FDA-Public Use
  Company Number: GB-JNJFOC-20150516096

PATIENT
  Sex: Female

DRUGS (1)
  1. VERMOX [Suspect]
     Active Substance: MEBENDAZOLE
     Indication: HELMINTHIC INFECTION
     Route: 048
     Dates: start: 201310

REACTIONS (5)
  - Tourette^s disorder [Unknown]
  - Intentional product misuse [Unknown]
  - Vaginal infection [Unknown]
  - Enterobiasis [Unknown]
  - Drug ineffective [Unknown]
